FAERS Safety Report 7224245-0 (Version None)
Quarter: 2011Q1

REPORT INFORMATION
  Report Type: 
  Country: None (occurrence: None)
  Receive Date: 20110113
  Receipt Date: 20101230
  Transmission Date: 20110831
  Serious: Yes (Life-Threatening, Hospitalization, Other)
  Sender: FDA-Public Use
  Company Number: US-RANBAXY-2006RR-01504

PATIENT
  Age: 42 Year
  Sex: Female

DRUGS (2)
  1. HYDROCODONE BITARTRATE AND IBUPROFEN [Concomitant]
     Indication: DENTAL CARE
     Dosage: 207.5 MG, UNK
     Dates: start: 20010101
  2. AMOXICILLIN [Suspect]
     Indication: TOOTH INFECTION
     Dosage: 500 MG, TID
     Dates: start: 20010101

REACTIONS (2)
  - HEPATIC ENCEPHALOPATHY [None]
  - ACUTE HEPATIC FAILURE [None]
